FAERS Safety Report 20629451 (Version 3)
Quarter: 2022Q1

REPORT INFORMATION
  Report Type: Report from Study
  Country: BR (occurrence: BR)
  Receive Date: 20220323
  Receipt Date: 20220329
  Transmission Date: 20220424
  Serious: Yes (Other)
  Sender: FDA-Public Use
  Company Number: BR-NOVARTISPH-NVSC2020BR002760

PATIENT
  Age: 67 Year
  Sex: Female
  Weight: 47 kg

DRUGS (13)
  1. KISQALI [Suspect]
     Active Substance: RIBOCICLIB
     Indication: Breast cancer
     Dosage: UNK
     Route: 065
     Dates: start: 20190912
  2. KISQALI [Suspect]
     Active Substance: RIBOCICLIB
     Dosage: UNK, TID
     Route: 065
     Dates: start: 20190912
  3. KISQALI [Suspect]
     Active Substance: RIBOCICLIB
     Dosage: 3 DF, QD FOR 3 WEEKS AND BREAK FOR 7 DAYS
     Route: 065
     Dates: start: 20190912
  4. KISQALI [Suspect]
     Active Substance: RIBOCICLIB
     Dosage: UNK
     Route: 065
     Dates: start: 201909
  5. KISQALI [Suspect]
     Active Substance: RIBOCICLIB
     Dosage: UNK
     Route: 065
     Dates: start: 20190912
  6. KISQALI [Suspect]
     Active Substance: RIBOCICLIB
     Dosage: UNK
     Route: 065
     Dates: start: 20220123
  7. KISQALI [Suspect]
     Active Substance: RIBOCICLIB
     Dosage: UNK
     Route: 065
  8. FEMARA [Suspect]
     Active Substance: LETROZOLE
     Indication: Breast cancer metastatic
     Dosage: UNK
     Route: 065
     Dates: start: 20190913
  9. FEMARA [Suspect]
     Active Substance: LETROZOLE
     Dosage: UNK
     Route: 065
  10. FEMARA [Suspect]
     Active Substance: LETROZOLE
     Dosage: UNK
     Route: 065
  11. FEMARA [Suspect]
     Active Substance: LETROZOLE
     Dosage: UNK
     Route: 065
     Dates: start: 201909
  12. ALPRAZOLAM [Suspect]
     Active Substance: ALPRAZOLAM
     Indication: Insomnia
     Dosage: UNK
     Route: 065
  13. NUTREM [Concomitant]
     Indication: Product used for unknown indication
     Dosage: UNK
     Route: 065

REACTIONS (34)
  - Cataract [Unknown]
  - Corneal dystrophy [Unknown]
  - Weight decreased [Not Recovered/Not Resolved]
  - Paraesthesia [Unknown]
  - Ageusia [Not Recovered/Not Resolved]
  - Alopecia [Recovering/Resolving]
  - Fatigue [Recovered/Resolved]
  - Headache [Unknown]
  - Decreased immune responsiveness [Not Recovered/Not Resolved]
  - Appetite disorder [Not Recovered/Not Resolved]
  - Muscular weakness [Unknown]
  - Apathy [Recovered/Resolved]
  - Sluggishness [Recovered/Resolved]
  - Pain in extremity [Unknown]
  - Malaise [Unknown]
  - Eye disorder [Unknown]
  - Visual impairment [Unknown]
  - Dysgeusia [Not Recovered/Not Resolved]
  - Oropharyngeal pain [Not Recovered/Not Resolved]
  - Dry mouth [Not Recovered/Not Resolved]
  - Spinal pain [Recovering/Resolving]
  - Influenza [Unknown]
  - Dysphonia [Not Recovered/Not Resolved]
  - Nasal congestion [Unknown]
  - Neck pain [Recovering/Resolving]
  - Vision blurred [Unknown]
  - Pulmonary mass [Unknown]
  - Nausea [Recovered/Resolved]
  - Pyrexia [Recovered/Resolved]
  - Back pain [Not Recovered/Not Resolved]
  - Cough [Not Recovered/Not Resolved]
  - Vomiting [Recovered/Resolved]
  - Fatigue [Not Recovered/Not Resolved]
  - Physical product label issue [Unknown]

NARRATIVE: CASE EVENT DATE: 20190901
